FAERS Safety Report 17611762 (Version 2)
Quarter: 2021Q1

REPORT INFORMATION
  Report Type: Spontaneous
  Country: US (occurrence: US)
  Receive Date: 20200401
  Receipt Date: 20210217
  Transmission Date: 20210419
  Serious: Yes (Hospitalization)
  Sender: FDA-Public Use
  Company Number: US-LUNDBECK-DKLU3014304

PATIENT
  Age: 51 Year
  Sex: Male

DRUGS (3)
  1. NORTHERA [Suspect]
     Active Substance: DROXIDOPA
     Indication: ORTHOSTATIC HYPOTENSION
     Dosage: DAY 1 TO 3
     Route: 048
     Dates: start: 20200109
  2. NORTHERA [Suspect]
     Active Substance: DROXIDOPA
     Route: 048
     Dates: start: 20200810
  3. NORTHERA [Suspect]
     Active Substance: DROXIDOPA
     Indication: AUTONOMIC NEUROPATHY
     Route: 048

REACTIONS (5)
  - Condition aggravated [Unknown]
  - Gastric ulcer [Unknown]
  - Oesophageal disorder [Unknown]
  - Dysphagia [Unknown]
  - Headache [Unknown]

NARRATIVE: CASE EVENT DATE: 20200319
